FAERS Safety Report 5850052-7 (Version None)
Quarter: 2008Q3

REPORT INFORMATION
  Report Type: 
  Country: None (occurrence: None)
  Receive Date: 20080731
  Receipt Date: 20080407
  Transmission Date: 20090109
  Serious: No
  Sender: FDA-Public Use
  Company Number: US200804001888

PATIENT
  Age: 76 Year
  Sex: Female

DRUGS (2)
  1. BYETTA [Suspect]
     Dosage: 5 UG  SUBCUTANEOUS
     Route: 058
  2. EXENATIDE 5 MCG PEN, DISPOSABLE DEVICE (EXENATIDE PEN (5MCG)) PEN, DIS [Concomitant]

REACTIONS (1)
  - VISUAL ACUITY REDUCED [None]
